FAERS Safety Report 9251784 (Version 1)
Quarter: 2013Q2

REPORT INFORMATION
  Report Type: Spontaneous
  Country: US (occurrence: US)
  Receive Date: 20130424
  Receipt Date: 20130424
  Transmission Date: 20140414
  Serious: Yes (Hospitalization)
  Sender: FDA-Public Use
  Company Number: US-PFIZER INC-2013125035

PATIENT
  Sex: Female
  Weight: 60.32 kg

DRUGS (11)
  1. IRINOTECAN HCL [Suspect]
     Indication: COLORECTAL CANCER
     Dosage: 210 MG, UNK
     Dates: start: 20120530, end: 20120815
  2. FLUOROURACIL [Concomitant]
     Indication: COLORECTAL CANCER
     Dosage: 1600 MG, CYCLIC
  3. ATROPINE SULFATE [Concomitant]
     Indication: COLORECTAL CANCER
     Dosage: 0.25 MG, CYCLIC
  4. LEUCOVORIN CALCIUM [Concomitant]
     Indication: COLORECTAL CANCER
     Dosage: 325 MG, CYCLIC
  5. PALONOSETRON HYDROCHLORIDE [Concomitant]
     Indication: COLORECTAL CANCER
     Dosage: 0.25 MG, CYCLIC
  6. AMLODIPINE [Concomitant]
     Indication: HYPERTENSION
     Dosage: 0.5 MG, 1X/DAY
  7. LORAZEPAM [Concomitant]
     Indication: ANXIETY
     Dosage: 1 MG, 1X/DAY
  8. LORAZEPAM [Concomitant]
     Indication: SLEEP DISORDER
  9. COMPAZINE [Concomitant]
     Indication: NAUSEA
     Dosage: 10 MG, AS NEEDED
  10. CALCIUM CARBONATE/ERGOCALCIFEROL [Concomitant]
     Indication: OSTEOPOROSIS
     Dosage: 1 DF, 1X/DAY
     Route: 048
  11. VITAMIN C [Concomitant]
     Dosage: 1 DF, 1X/DAY
     Route: 048

REACTIONS (3)
  - Diarrhoea [Recovered/Resolved]
  - Dehydration [Recovered/Resolved]
  - Hyponatraemia [Recovered/Resolved]
